FAERS Safety Report 22096956 (Version 3)
Quarter: 2023Q2

REPORT INFORMATION
  Report Type: Spontaneous
  Country: AR (occurrence: AR)
  Receive Date: 20230315
  Receipt Date: 20230504
  Transmission Date: 20230722
  Serious: No
  Sender: FDA-Public Use
  Company Number: AR-PFIZER INC-PV202300046222

PATIENT
  Age: 11 Year
  Sex: Male

DRUGS (1)
  1. GENOTROPIN [Suspect]
     Active Substance: SOMATROPIN
     Indication: Short stature
     Dosage: 0.6 TO 1MG 7 TIMES PER WEEK
     Dates: start: 20180627

REACTIONS (2)
  - Drug dose omission by device [Unknown]
  - Device electrical finding [Unknown]

NARRATIVE: CASE EVENT DATE: 20230308
